FAERS Safety Report 10666303 (Version 3)
Quarter: 2016Q2

REPORT INFORMATION
  Report Type: Report from Study
  Country: ES (occurrence: ES)
  Receive Date: 20141220
  Receipt Date: 20160401
  Transmission Date: 20160815
  Serious: Yes (Hospitalization)
  Sender: FDA-Public Use
  Company Number: ES-ROCHE-795750

PATIENT
  Age: 65 Year
  Sex: Female

DRUGS (32)
  1. CYCLOPHOSPHAMIDE. [Suspect]
     Active Substance: CYCLOPHOSPHAMIDE
     Dosage: DOSE REDUCED
     Route: 042
  2. RAMIPRIL. [Concomitant]
     Active Substance: RAMIPRIL
     Indication: HYPERTENSION
     Route: 065
     Dates: end: 20120516
  3. TRAMADOL HYDROCHLORIDE AND ACETAMINOPHEN [Concomitant]
     Active Substance: ACETAMINOPHEN\TRAMADOL HYDROCHLORIDE
     Indication: PAIN
     Route: 065
     Dates: end: 20111221
  4. PARACETAMOL [Concomitant]
     Active Substance: ACETAMINOPHEN
     Indication: PREMEDICATION
     Route: 065
     Dates: start: 20110727, end: 20111221
  5. HYDROCORTISONE. [Concomitant]
     Active Substance: HYDROCORTISONE
     Indication: HYPERHIDROSIS
     Route: 065
     Dates: start: 20110727, end: 20110727
  6. HYDROCORTISONE. [Concomitant]
     Active Substance: HYDROCORTISONE
     Indication: DERMATITIS CONTACT
  7. NOVORAPID [Concomitant]
     Active Substance: INSULIN ASPART
     Indication: DIABETES MELLITUS
     Route: 065
     Dates: start: 201205
  8. OMEPRAZOLE. [Concomitant]
     Active Substance: OMEPRAZOLE
     Indication: PROPHYLAXIS
     Route: 065
     Dates: end: 20111221
  9. DEXCHLORPHENIRAMINE [Concomitant]
     Active Substance: DEXCHLORPHENIRAMINE
     Indication: PREMEDICATION
     Route: 065
     Dates: start: 20110727, end: 20111221
  10. OBINUTUZUMAB [Suspect]
     Active Substance: OBINUTUZUMAB
     Indication: DIFFUSE LARGE B-CELL LYMPHOMA
     Dosage: 250ML AT A CONCENTRATION OF 4MG/ML. LAST DOSE PRIOR TO ONSET OF FIRST EPISODE OF FEBRILE NETUROPENIA
     Route: 042
  11. CODEROL [Concomitant]
     Indication: OSTEOARTHRITIS
     Route: 065
     Dates: end: 20130819
  12. METOCLOPRAMIDE. [Concomitant]
     Active Substance: METOCLOPRAMIDE
     Indication: NAUSEA
     Route: 065
     Dates: start: 20110727, end: 201112
  13. PREDNISOLONE. [Suspect]
     Active Substance: PREDNISOLONE
     Indication: DIFFUSE LARGE B-CELL LYMPHOMA
     Dosage: LAST DOSE TAKEN: 80 MG. LAST DOSE PRIOR TO ONSET OF FIRST EPISODE OF FEBRILE NETUROPENIA: 31/JUL/201
     Route: 042
     Dates: start: 20110727
  14. KETOCONAZOLE. [Concomitant]
     Active Substance: KETOCONAZOLE
     Indication: DERMATITIS CONTACT
     Route: 065
     Dates: start: 20110919, end: 20110929
  15. CYCLOPHOSPHAMIDE. [Suspect]
     Active Substance: CYCLOPHOSPHAMIDE
     Indication: DIFFUSE LARGE B-CELL LYMPHOMA
     Dosage: LAST DOSE TAKEN: 1335 MG. LAST DOSE PRIOR TO ONSET OF FIRST EPISODE OF FEBRILE NETUROPENIA: 27/JUL/2
     Route: 042
     Dates: start: 20110727
  16. DOXORUBICIN [Suspect]
     Active Substance: DOXORUBICIN
     Indication: DIFFUSE LARGE B-CELL LYMPHOMA
     Dosage: LAST DOSE TAKEN: 89 MG. LAST DOSE PRIOR TO ONSET OF FIRST EPISODE OF FEBRILE NETUROPENIA: 27/JUL/201
     Route: 042
     Dates: start: 20110727
  17. LORAZEPAM. [Concomitant]
     Active Substance: LORAZEPAM
     Indication: INSOMNIA
     Route: 065
     Dates: start: 201108, end: 20111221
  18. MICONAZOLE. [Concomitant]
     Active Substance: MICONAZOLE
     Indication: VULVOVAGINAL CANDIDIASIS
     Route: 065
     Dates: start: 20110822, end: 20110824
  19. BETAMETHASONE. [Concomitant]
     Active Substance: BETAMETHASONE
     Indication: VULVOVAGINAL CANDIDIASIS
     Route: 065
     Dates: start: 20110825, end: 20110901
  20. LISINOPRIL. [Concomitant]
     Active Substance: LISINOPRIL
     Indication: HYPERTENSION
     Route: 065
     Dates: start: 201209
  21. FENTANYL. [Concomitant]
     Active Substance: FENTANYL
  22. DOXORUBICIN [Suspect]
     Active Substance: DOXORUBICIN
     Dosage: DOSE REDUCED
     Route: 042
  23. VINCRISTINE [Suspect]
     Active Substance: VINCRISTINE
     Indication: DIFFUSE LARGE B-CELL LYMPHOMA
     Dosage: LAST DOSE PRIOR TO ONSET OF FIRST EPISODE OF FEBRILE NETUROPENIA: 2MG ON 27/JUL/2011 AND SECOND EPIS
     Route: 040
     Dates: start: 20110727
  24. LYRICA [Concomitant]
     Active Substance: PREGABALIN
     Indication: PAIN
     Route: 065
     Dates: end: 20111221
  25. CLOTRIMAZOL [Concomitant]
     Active Substance: CLOTRIMAZOLE
     Indication: VULVOVAGINAL CANDIDIASIS
     Route: 065
     Dates: start: 20110902, end: 20110907
  26. HYDROCORTISONE. [Concomitant]
     Active Substance: HYDROCORTISONE
     Indication: FLUSHING
     Route: 065
     Dates: start: 20110919, end: 20110929
  27. NOLOTIL [Concomitant]
     Active Substance: METAMIZOLE
     Indication: SCIATICA
     Route: 065
     Dates: start: 201512
  28. ISOPHANE INSULIN [Concomitant]
     Active Substance: INSULIN NOS
     Indication: DIABETES MELLITUS
  29. CEFEPIME [Concomitant]
     Active Substance: CEFEPIME HYDROCHLORIDE
     Route: 065
     Dates: start: 20110916, end: 20110919
  30. ONDANSETRON [Concomitant]
     Active Substance: ONDANSETRON
     Indication: PREMEDICATION
     Route: 065
     Dates: start: 20110727, end: 20111109
  31. ACICLOVIR [Concomitant]
     Active Substance: ACYCLOVIR
     Indication: MOUTH ULCERATION
     Route: 065
     Dates: start: 20110810, end: 201108
  32. DEXCHLORPHENIRAMINE [Concomitant]
     Active Substance: DEXCHLORPHENIRAMINE
     Indication: PRURITUS
     Route: 065
     Dates: start: 201208, end: 20121106

REACTIONS (1)
  - Febrile neutropenia [Recovered/Resolved]

NARRATIVE: CASE EVENT DATE: 20110807
